FAERS Safety Report 4721056-2 (Version None)
Quarter: 2005Q3

REPORT INFORMATION
  Report Type: 
  Country: None (occurrence: None)
  Receive Date: 20050719
  Receipt Date: 20040628
  Transmission Date: 20060218
  Serious: Yes (Death)
  Sender: FDA-Public Use
  Company Number: 2004221203FR

PATIENT
  Age: 83 Year
  Sex: Female

DRUGS (5)
  1. CELEBREX [Suspect]
     Indication: RHEUMATOID ARTHRITIS
     Dosage: 200 MG, BID, ORAL
     Route: 048
     Dates: start: 20040626, end: 20040628
  2. PREVACID (FLUINDIONE) [Concomitant]
  3. LASIX [Concomitant]
  4. HALDOL [Concomitant]
  5. DI-ANTALVIC (DEXTROPROPOXYPHENE HYDROCHLORIDE) [Concomitant]

REACTIONS (3)
  - DEATH [None]
  - HYPERHIDROSIS [None]
  - OEDEMA [None]
